FAERS Safety Report 4722819-X (Version None)
Quarter: 2005Q3

REPORT INFORMATION
  Report Type: 
  Country: None (occurrence: None)
  Receive Date: 20050722
  Receipt Date: 20050713
  Transmission Date: 20060218
  Serious: Yes (Hospitalization)
  Sender: FDA-Public Use
  Company Number: US-JNJFOC-20050703104

PATIENT
  Sex: Female
  Weight: 47.63 kg

DRUGS (4)
  1. DURAGESIC-100 [Suspect]
     Route: 062
  2. DURAGESIC-100 [Suspect]
     Route: 062
  3. VICODIN [Concomitant]
     Route: 048
     Dates: start: 20050201, end: 20050601
  4. VICODIN [Concomitant]
     Route: 048
     Dates: start: 20050201, end: 20050601

REACTIONS (10)
  - FAECALOMA [None]
  - FALL [None]
  - FEELING JITTERY [None]
  - HALLUCINATION [None]
  - INAPPROPRIATE SCHEDULE OF DRUG ADMINISTRATION [None]
  - MEMORY IMPAIRMENT [None]
  - NAUSEA [None]
  - SOMNOLENCE [None]
  - SPINAL FRACTURE [None]
  - VISION BLURRED [None]
